FAERS Safety Report 8901210 (Version 1)
Quarter: 2012Q4

REPORT INFORMATION
  Report Type: 
  Country: DK (occurrence: FR)
  Receive Date: 20121108
  Receipt Date: 20121108
  Transmission Date: 20130627
  Serious: Yes (Life-Threatening, Other)
  Sender: FDA-Public Use
  Company Number: FR-FRI-1000040249

PATIENT
  Sex: Male

DRUGS (18)
  1. CITALOPRAM [Suspect]
     Dosage: 20 mg
     Route: 048
  2. INEXIUM [Suspect]
     Indication: ABDOMINAL PAIN UPPER
     Dosage: 40 MG
     Route: 048
     Dates: start: 20120927, end: 20121003
  3. IMUREL [Suspect]
     Indication: CROHN^S DISEASE
     Dosage: 150 mg
     Route: 048
  4. HUMIRA [Suspect]
     Dosage: 2.8571mg
  5. AMLOR [Concomitant]
  6. ARESTAL [Concomitant]
  7. AVLOCARDYL [Concomitant]
  8. DAFALGAN [Concomitant]
  9. HYDROCORTISONE [Concomitant]
  10. HYPERIUM [Concomitant]
  11. IMOVANE [Concomitant]
  12. KARDEGIC [Concomitant]
  13. LEXOMIL [Concomitant]
  14. POTASSIUM RICHARD [Concomitant]
  15. SMECTA [Concomitant]
  16. TIORFAN [Concomitant]
  17. LOVENOX [Concomitant]
  18. PIPERACILLINE TAZOBACTAM [Concomitant]

REACTIONS (1)
  - Bicytopenia [Unknown]
